FAERS Safety Report 16426514 (Version 1)
Quarter: 2019Q2

REPORT INFORMATION
  Report Type: Spontaneous
  Country: US (occurrence: US)
  Receive Date: 20190613
  Receipt Date: 20190613
  Transmission Date: 20190711
  Serious: Yes (Other)
  Sender: FDA-Public Use
  Company Number: US-JNJFOC-20190617367

PATIENT
  Age: 78 Year
  Sex: Female
  Weight: 47.17 kg

DRUGS (2)
  1. HUMIRA [Suspect]
     Active Substance: ADALIMUMAB
     Indication: COLITIS ULCERATIVE
     Route: 058
     Dates: start: 20170612
  2. SIMPONI [Suspect]
     Active Substance: GOLIMUMAB
     Indication: PRODUCT USED FOR UNKNOWN INDICATION
     Route: 058

REACTIONS (10)
  - Abdominal pain [Unknown]
  - Defaecation urgency [Unknown]
  - Abdominal distension [Unknown]
  - Gastrointestinal haemorrhage [Unknown]
  - Gastrointestinal pain [Unknown]
  - Depression [Unknown]
  - Asthenia [Unknown]
  - Constipation [Unknown]
  - Essential tremor [Unknown]
  - Anxiety [Unknown]

NARRATIVE: CASE EVENT DATE: 201706
